FAERS Safety Report 20607053 (Version 1)
Quarter: 2022Q1

REPORT INFORMATION
  Report Type: Spontaneous
  Country: CA (occurrence: CA)
  Receive Date: 20220317
  Receipt Date: 20220317
  Transmission Date: 20220423
  Serious: Yes (Hospitalization, Other)
  Sender: FDA-Public Use
  Company Number: CA-PFIZER INC-202200402427

PATIENT
  Age: 57 Year
  Sex: Female
  Weight: 65 kg

DRUGS (29)
  1. CYTARABINE [Suspect]
     Active Substance: CYTARABINE
     Indication: Acute myeloid leukaemia
     Dosage: UNK
  2. RYDAPT [Suspect]
     Active Substance: MIDOSTAURIN
     Indication: Acute myeloid leukaemia
     Dosage: UNK
  3. ALLOPURINOL [Concomitant]
     Active Substance: ALLOPURINOL
  4. AMITRIPTYLINE [Concomitant]
     Active Substance: AMITRIPTYLINE
  5. ASPIRIN [Concomitant]
     Active Substance: ASPIRIN
     Route: 065
  6. BREO ELLIPTA [Concomitant]
     Active Substance: FLUTICASONE FUROATE\VILANTEROL TRIFENATATE
     Route: 065
  7. CYTARABINE [Concomitant]
     Active Substance: CYTARABINE
  8. DEXAMETHASONE [Concomitant]
     Active Substance: DEXAMETHASONE
     Route: 065
  9. ESTRADIOL [Concomitant]
     Active Substance: ESTRADIOL
  10. FLUTICASONE PROPIONATE\SALMETEROL XINAFOATE [Concomitant]
     Active Substance: FLUTICASONE PROPIONATE\SALMETEROL XINAFOATE
     Route: 055
  11. GRANISETRON [Concomitant]
     Active Substance: GRANISETRON
  12. HYDROXYUREA [Concomitant]
     Active Substance: HYDROXYUREA
  13. IDARUBICIN [Concomitant]
     Active Substance: IDARUBICIN
  14. LORAZEPAM [Concomitant]
     Active Substance: LORAZEPAM
     Route: 065
  15. MAXIDEX [Concomitant]
     Active Substance: DEXAMETHASONE
     Route: 065
  16. METOCLOPRAMIDE [Concomitant]
     Active Substance: METOCLOPRAMIDE
  17. MORPHINE [Concomitant]
     Active Substance: MORPHINE
  18. NAPROXEN [Concomitant]
     Active Substance: NAPROXEN
  19. NUCALA [Concomitant]
     Active Substance: MEPOLIZUMAB
  20. OLANZAPINE [Concomitant]
     Active Substance: OLANZAPINE
  21. ONDANSETRON [Concomitant]
     Active Substance: ONDANSETRON
  22. PANTOPRAZOLE [Concomitant]
     Active Substance: PANTOPRAZOLE
  23. POLYETHYLENE GLYCOLS [Concomitant]
     Active Substance: POLYETHYLENE GLYCOLS
  24. POSACONAZOLE [Concomitant]
     Active Substance: POSACONAZOLE
  25. PROGESTERONE [Concomitant]
     Active Substance: PROGESTERONE
  26. SUMATRIPTAN [Concomitant]
     Active Substance: SUMATRIPTAN
  27. VALACYCLOVIR [Concomitant]
     Active Substance: VALACYCLOVIR HYDROCHLORIDE
     Dosage: UNK
  28. VALACYCLOVIR [Concomitant]
     Active Substance: VALACYCLOVIR HYDROCHLORIDE
     Dosage: UNK
  29. CHOLECALCIFEROL [Concomitant]
     Active Substance: CHOLECALCIFEROL

REACTIONS (1)
  - Febrile neutropenia [Recovered/Resolved]
